FAERS Safety Report 24196991 (Version 2)
Quarter: 2024Q4

REPORT INFORMATION
  Report Type: Report from Study
  Country: US (occurrence: US)
  Receive Date: 20240810
  Receipt Date: 20241122
  Transmission Date: 20250115
  Serious: Yes (Other)
  Sender: TEVA
  Company Number: US-TEVA-VS-3230291

PATIENT
  Age: 42 Year
  Sex: Male

DRUGS (18)
  1. AUSTEDO [Suspect]
     Active Substance: DEUTETRABENAZINE
     Indication: Generalised anxiety disorder
     Dosage: TAKE 1 TABLET BY MOUTH EACH MORNING AND 2 TABLETS IN THE EVENING
     Route: 048
  2. DEPAKOTE ER [Concomitant]
     Active Substance: DIVALPROEX SODIUM
     Indication: Product used for unknown indication
     Dosage: TB2
     Route: 065
  3. LATUDA [Concomitant]
     Active Substance: LURASIDONE HYDROCHLORIDE
     Indication: Product used for unknown indication
     Route: 065
  4. LEXAPRO [Concomitant]
     Active Substance: ESCITALOPRAM OXALATE
     Indication: Product used for unknown indication
     Route: 065
  5. LISINOPRIL [Concomitant]
     Active Substance: LISINOPRIL
     Indication: Product used for unknown indication
     Route: 065
  6. LYRICA [Concomitant]
     Active Substance: PREGABALIN
     Indication: Product used for unknown indication
     Route: 065
  7. OZEMPIC [Concomitant]
     Active Substance: SEMAGLUTIDE
     Indication: Product used for unknown indication
     Dosage: 0.2 SOP 2MG/ML
     Route: 065
  8. trazodone HC [Concomitant]
     Indication: Product used for unknown indication
     Route: 065
  9. AJOVY [Concomitant]
     Active Substance: FREMANEZUMAB-VFRM
     Indication: Product used for unknown indication
     Dosage: SOA 225 MG/1.5ML
     Route: 065
  10. Amlodipine B [Concomitant]
     Indication: Product used for unknown indication
     Route: 065
  11. Buspirone HC [Concomitant]
     Indication: Product used for unknown indication
     Route: 065
  12. CELEBREX [Concomitant]
     Active Substance: CELECOXIB
     Indication: Product used for unknown indication
     Route: 065
  13. Methocarbamo [Concomitant]
     Indication: Product used for unknown indication
     Route: 065
  14. ROSUVASTATIN [Concomitant]
     Active Substance: ROSUVASTATIN
     Indication: Product used for unknown indication
     Route: 065
  15. PROPRANOLOL [Concomitant]
     Active Substance: PROPRANOLOL HYDROCHLORIDE
     Indication: Product used for unknown indication
     Dosage: CP2
     Route: 065
  16. TOPIRAMATE [Concomitant]
     Active Substance: TOPIRAMATE
     Indication: Product used for unknown indication
     Route: 065
  17. NURTEC ODT [Concomitant]
     Active Substance: RIMEGEPANT SULFATE
     Indication: Product used for unknown indication
     Dosage: TBD
     Route: 065
  18. Grodon [Concomitant]
     Indication: Product used for unknown indication
     Route: 065

REACTIONS (15)
  - Type 2 diabetes mellitus [Not Recovered/Not Resolved]
  - Dyskinesia [Unknown]
  - Depression [Not Recovered/Not Resolved]
  - Fatigue [Not Recovered/Not Resolved]
  - Schizophrenia [Not Recovered/Not Resolved]
  - Tremor [Unknown]
  - Parkinson^s disease [Unknown]
  - Asthenia [Not Recovered/Not Resolved]
  - Insomnia [Not Recovered/Not Resolved]
  - Hyperphagia [Unknown]
  - Bipolar disorder [Not Recovered/Not Resolved]
  - Weight decreased [Unknown]
  - Loss of personal independence in daily activities [Unknown]
  - Restlessness [Not Recovered/Not Resolved]
  - Product use in unapproved indication [Unknown]
